FAERS Safety Report 8841891 (Version 2)
Quarter: 2012Q4

REPORT INFORMATION
  Report Type: 
  Country: US (occurrence: None)
  Receive Date: 20121015
  Receipt Date: 20121015
  Transmission Date: 20130627
  Serious: Yes (Hospitalization, Other)
  Sender: FDA-Public Use
  Company Number: None

PATIENT
  Age: 58 Year
  Sex: Female
  Weight: 58.06 kg

DRUGS (2)
  1. METHYLPREDNISOLONE [Suspect]
  2. EPIDURAL INJECTIONS [Concomitant]

REACTIONS (3)
  - Meningitis [None]
  - Product quality issue [None]
  - Meningitis herpes [None]
